FAERS Safety Report 7040285-9 (Version None)
Quarter: 2010Q4

REPORT INFORMATION
  Report Type: 
  Country: None (occurrence: None)
  Receive Date: 20101012
  Receipt Date: 20100928
  Transmission Date: 20110411
  Serious: Yes (Other)
  Sender: FDA-Public Use
  Company Number: IS-PFIZER INC-2010123938

PATIENT
  Age: 61 Year
  Sex: Male

DRUGS (3)
  1. LYRICA [Suspect]
     Indication: NEURALGIA
     Dosage: 600 MG, 1X/DAY
  2. PARKODEIN FORTE [Concomitant]
     Dosage: UNK
  3. ACETAMINOPHEN [Concomitant]
     Dosage: UNK

REACTIONS (2)
  - FALL [None]
  - SYNCOPE [None]
